FAERS Safety Report 15296815 (Version 1)
Quarter: 2018Q3

REPORT INFORMATION
  Report Type: Other
  Country: EG (occurrence: EG)
  Receive Date: 20180820
  Receipt Date: 20180820
  Transmission Date: 20181010
  Serious: Yes (Other)
  Sender: FDA-Public Use
  Company Number: EG-MERCK KGAA-2053948

PATIENT
  Age: 30 Year
  Sex: Female

DRUGS (2)
  1. NOVOTHYROX [Suspect]
     Active Substance: LEVOTHYROXINE SODIUM
     Indication: HYPOTHYROIDISM
  2. PROGESTERONE. [Concomitant]
     Active Substance: PROGESTERONE

REACTIONS (6)
  - Live birth [Recovered/Resolved]
  - Maternal exposure during pregnancy [Recovered/Resolved]
  - Twin pregnancy [Recovered/Resolved]
  - Premature delivery [Recovered/Resolved]
  - Oligohydramnios [Recovered/Resolved]
  - Subchorionic haematoma [Recovered/Resolved]
